FAERS Safety Report 20629282 (Version 4)
Quarter: 2024Q3

REPORT INFORMATION
  Report Type: Spontaneous
  Country: US (occurrence: US)
  Receive Date: 20220323
  Receipt Date: 20240912
  Transmission Date: 20241016
  Serious: Yes (Other)
  Sender: PFIZER
  Company Number: US-PFIZER INC-202200427363

PATIENT
  Age: 17 Year
  Sex: Male

DRUGS (13)
  1. XELJANZ [Suspect]
     Active Substance: TOFACITINIB CITRATE
     Indication: Colitis ulcerative
     Dosage: 10 MG, 2X/DAY
     Route: 048
     Dates: start: 20200806
  2. XELJANZ [Suspect]
     Active Substance: TOFACITINIB CITRATE
     Dosage: 5 MG, 2X/DAY
     Route: 048
     Dates: start: 20200806
  3. XELJANZ [Suspect]
     Active Substance: TOFACITINIB CITRATE
     Dosage: 5 MG, 2X/DAY
     Route: 048
     Dates: start: 202009
  4. XELJANZ [Suspect]
     Active Substance: TOFACITINIB CITRATE
     Dosage: 5 MG, 2X/DAY
     Route: 048
     Dates: start: 202009, end: 20240830
  5. LEVOTHYROXINE SODIUM [Concomitant]
     Active Substance: LEVOTHYROXINE SODIUM
     Dosage: 50 UG
  6. LEVOTHYROXINE SODIUM [Concomitant]
     Active Substance: LEVOTHYROXINE SODIUM
     Dosage: 25 UG
  7. MUPIROCIN [Concomitant]
     Active Substance: MUPIROCIN
     Dosage: UNK
  8. TRIAMCINOLONE ACETONIDE [Concomitant]
     Active Substance: TRIAMCINOLONE ACETONIDE
     Dosage: UNK
  9. HYDROCORTISONE/PRAMOXINE [HYDROCORTISONE ACETATE;PRAMOCAINE HYDROCHLOR [Concomitant]
     Dosage: UNK
  10. KETOCONAZOLE [Concomitant]
     Active Substance: KETOCONAZOLE
     Dosage: UNK
  11. STELARA [Concomitant]
     Active Substance: USTEKINUMAB
     Dosage: UNK (90 MG/M), STELARA PFS
  12. MECLIZINE HYDROCHLORIDE [Concomitant]
     Active Substance: MECLIZINE HYDROCHLORIDE
     Dosage: UNK
  13. RINVOQ [Concomitant]
     Active Substance: UPADACITINIB
     Dosage: UNK, RINVOQ ER

REACTIONS (6)
  - Rectal haemorrhage [Recovering/Resolving]
  - Colitis ulcerative [Recovering/Resolving]
  - Tooth extraction [Unknown]
  - Abdominal pain [Recovering/Resolving]
  - White blood cell count decreased [Unknown]
  - Therapeutic product effect decreased [Unknown]

NARRATIVE: CASE EVENT DATE: 20220201
